FAERS Safety Report 9586881 (Version 1)
Quarter: 2013Q4

REPORT INFORMATION
  Report Type: Spontaneous
  Country: MX (occurrence: MX)
  Receive Date: 20131003
  Receipt Date: 20131003
  Transmission Date: 20140711
  Serious: Yes (Death, Other)
  Sender: FDA-Public Use
  Company Number: MX-PFIZER INC-2013282414

PATIENT
  Age: 77 Year
  Sex: Female
  Weight: 66 kg

DRUGS (3)
  1. CADUET [Suspect]
  2. LIPITOR [Suspect]
  3. NORVAS [Suspect]

REACTIONS (1)
  - Myocardial infarction [Fatal]
